FAERS Safety Report 6579059-1 (Version None)
Quarter: 2010Q1

REPORT INFORMATION
  Report Type: 
  Country: None (occurrence: None)
  Receive Date: 20100212
  Receipt Date: 20100201
  Transmission Date: 20100710
  Serious: Yes (Other)
  Sender: FDA-Public Use
  Company Number: PHHY2010US02954

PATIENT
  Sex: Female

DRUGS (10)
  1. ZOMETA [Suspect]
     Indication: METASTASES TO BONE
     Dosage: 04 MG, EVERY 04 WEEKS
     Route: 042
     Dates: start: 20080408, end: 20091208
  2. ANTIBIOTICS [Suspect]
  3. VICODIN [Suspect]
  4. PERCOCET [Suspect]
  5. NORVASC [Concomitant]
  6. COUMADIN [Concomitant]
  7. TOPROL-XL [Concomitant]
  8. ARIMIDEX [Concomitant]
  9. AVASTIN [Concomitant]
     Indication: BREAST CANCER
     Dosage: UNK
     Route: 042
     Dates: start: 20080312
  10. TAXOTERE [Concomitant]
     Indication: BREAST CANCER
     Dosage: UNK
     Route: 042
     Dates: start: 20080408

REACTIONS (9)
  - BONE DISORDER [None]
  - EATING DISORDER SYMPTOM [None]
  - METASTASIS [None]
  - OEDEMA MOUTH [None]
  - OSTEONECROSIS [None]
  - PAIN IN JAW [None]
  - RASH PUSTULAR [None]
  - TOOTH DISORDER [None]
  - WEIGHT DECREASED [None]
